FAERS Safety Report 6112334-3 (Version None)
Quarter: 2009Q1

REPORT INFORMATION
  Report Type: 
  Country: None (occurrence: None)
  Receive Date: 20090311
  Receipt Date: 20090311
  Transmission Date: 20090719
  Serious: No
  Sender: FDA-Public Use
  Company Number: None

PATIENT
  Age: 49 Year
  Sex: Female

DRUGS (4)
  1. CHANTIX [Suspect]
     Indication: SMOKING CESSATION THERAPY
     Dosage: 1 FOR 3 DAYS 2 EVERY DRUG AFTER
     Dates: start: 20090112
  2. CHANTIX [Suspect]
     Indication: SMOKING CESSATION THERAPY
     Dosage: 1 FOR 3 DAYS 2 EVERY DRUG AFTER
     Dates: start: 20090113
  3. CHANTIX [Suspect]
     Indication: SMOKING CESSATION THERAPY
     Dosage: 1 FOR 3 DAYS 2 EVERY DRUG AFTER
     Dates: start: 20090114
  4. CHANTIX [Suspect]
     Indication: SMOKING CESSATION THERAPY
     Dosage: 1 FOR 3 DAYS 2 EVERY DRUG AFTER
     Dates: start: 20090115

REACTIONS (4)
  - CHEST PAIN [None]
  - HEADACHE [None]
  - PRESYNCOPE [None]
  - VERTIGO [None]
